FAERS Safety Report 25936366 (Version 2)
Quarter: 2025Q4

REPORT INFORMATION
  Report Type: Report from Study
  Country: US (occurrence: US)
  Receive Date: 20251017
  Receipt Date: 20251029
  Transmission Date: 20260117
  Serious: Yes (Hospitalization, Other)
  Sender: ABBVIE
  Company Number: US-ABBVIE-6506813

PATIENT
  Age: 48 Year
  Sex: Male
  Weight: 113.39 kg

DRUGS (2)
  1. HUMIRA [Suspect]
     Active Substance: ADALIMUMAB
     Indication: Crohn^s disease
     Dosage: STRENGTH: 80 MILLIGRAM?FREQUENCY: UNKNOWN
     Route: 058
     Dates: start: 20150601, end: 20241231
  2. HUMIRA [Suspect]
     Active Substance: ADALIMUMAB
     Dosage: STRENGTH: 40 MILLIGRAM
     Route: 058
     Dates: start: 20250101

REACTIONS (2)
  - Bacterial sepsis [Recovered/Resolved]
  - Device occlusion [Recovered/Resolved]

NARRATIVE: CASE EVENT DATE: 20250827
